FAERS Safety Report 7062758-5 (Version None)
Quarter: 2010Q4

REPORT INFORMATION
  Report Type: 
  Country: None (occurrence: None)
  Receive Date: 20101026
  Receipt Date: 20100115
  Transmission Date: 20110411
  Serious: No
  Sender: FDA-Public Use
  Company Number: US-PFIZER INC-2010007220

PATIENT
  Sex: Female

DRUGS (3)
  1. LIPITOR [Suspect]
     Indication: BLOOD CHOLESTEROL INCREASED
     Dosage: 60 MG, 1X/DAY
     Route: 048
     Dates: start: 19970101, end: 20091001
  2. VALSARTAN [Concomitant]
     Dosage: UNK
  3. METAXALONE [Concomitant]
     Dosage: UNK

REACTIONS (3)
  - MUSCLE INJURY [None]
  - MUSCULAR WEAKNESS [None]
  - PAIN IN EXTREMITY [None]
